FAERS Safety Report 11335726 (Version 1)
Quarter: 2015Q3

REPORT INFORMATION
  Report Type: Spontaneous
  Country: LB (occurrence: LB)
  Receive Date: 20150804
  Receipt Date: 20150804
  Transmission Date: 20151125
  Serious: Yes (Death, Hospitalization)
  Sender: FDA-Public Use
  Company Number: LB-SA-2015SA110917

PATIENT
  Age: 75 Year
  Sex: Female
  Weight: 65 kg

DRUGS (2)
  1. CISPLATIN. [Suspect]
     Active Substance: CISPLATIN
     Indication: NON-SMALL CELL LUNG CANCER
     Route: 042
     Dates: start: 20121225, end: 20121225
  2. TAXOTERE [Suspect]
     Active Substance: DOCETAXEL
     Indication: NON-SMALL CELL LUNG CANCER
     Route: 042
     Dates: start: 20121225, end: 20121225

REACTIONS (5)
  - General physical health deterioration [Fatal]
  - Nausea [Fatal]
  - Bone pain [Fatal]
  - Disease progression [Fatal]
  - Diarrhoea [Fatal]

NARRATIVE: CASE EVENT DATE: 20121229
